FAERS Safety Report 6197493-9 (Version None)
Quarter: 2009Q2

REPORT INFORMATION
  Report Type: 
  Country: None (occurrence: None)
  Receive Date: 20090521
  Receipt Date: 20090514
  Transmission Date: 20091009
  Serious: Yes (Hospitalization)
  Sender: FDA-Public Use
  Company Number: US-ASTRAZENECA-2009UW12520

PATIENT
  Sex: Male
  Weight: 136.1 kg

DRUGS (3)
  1. SEROQUEL [Suspect]
     Indication: SLEEP DISORDER
     Route: 048
     Dates: start: 20081001, end: 20090201
  2. METFORMIN HCL [Concomitant]
  3. BYATTA [Concomitant]

REACTIONS (2)
  - BLOOD MAGNESIUM DECREASED [None]
  - HYPERGLYCAEMIA [None]
